FAERS Safety Report 9342059 (Version 1)
Quarter: 2013Q2

REPORT INFORMATION
  Report Type: Spontaneous
  Country: FR (occurrence: FR)
  Receive Date: 20130611
  Receipt Date: 20130611
  Transmission Date: 20140414
  Serious: Yes (Hospitalization)
  Sender: FDA-Public Use
  Company Number: PHHY2013FR058099

PATIENT
  Age: 79 Year
  Sex: Male
  Weight: 62 kg

DRUGS (6)
  1. VOLTARENE [Suspect]
     Indication: BACK PAIN
     Dosage: 25 MG, BID
     Route: 048
     Dates: start: 20130516, end: 20130521
  2. TERALITHE [Interacting]
     Indication: BIPOLAR DISORDER
     Dosage: 250 MG (2.5 DF A DAY)
     Route: 048
     Dates: end: 20130522
  3. MODOPAR [Concomitant]
     Dosage: UNK
  4. PARACETAMOL/CODEINE [Concomitant]
     Dosage: UNK
     Dates: start: 20130513
  5. INEXIUM//ESOMEPRAZOLE MAGNESIUM [Concomitant]
     Indication: GASTROINTESTINAL DISORDER
     Dosage: UNK
  6. EUPANTOL [Concomitant]
     Indication: GASTROINTESTINAL DISORDER
     Dosage: UNK
     Dates: start: 20130522

REACTIONS (6)
  - Hypernatraemia [Not Recovered/Not Resolved]
  - Tremor [Unknown]
  - Antipsychotic drug level above therapeutic [Recovered/Resolved]
  - Vomiting [Recovered/Resolved]
  - Convulsion [Recovered/Resolved]
  - Drug interaction [Recovered/Resolved]
